FAERS Safety Report 6128148-4 (Version None)
Quarter: 2009Q1

REPORT INFORMATION
  Report Type: 
  Country: None (occurrence: None)
  Receive Date: 20090323
  Receipt Date: 20090311
  Transmission Date: 20090719
  Serious: Yes (Other)
  Sender: FDA-Public Use
  Company Number: IR-ROCHE-620974

PATIENT
  Age: 62 Year
  Sex: Female

DRUGS (4)
  1. VALCYTE [Suspect]
     Route: 065
  2. CELLCEPT [Concomitant]
  3. CELLCEPT [Concomitant]
     Dosage: DOSE REDUCED
  4. SANDIMMUNE [Concomitant]

REACTIONS (2)
  - ANAEMIA [None]
  - B-CELL LYMPHOMA [None]
